FAERS Safety Report 20796214 (Version 1)
Quarter: 2022Q2

REPORT INFORMATION
  Report Type: Report from Study
  Country: CA (occurrence: CA)
  Receive Date: 20220506
  Receipt Date: 20220506
  Transmission Date: 20220721
  Serious: Yes (Other)
  Sender: FDA-Public Use
  Company Number: CA-TAKEDA-2022TUS027171

PATIENT
  Age: 67 Year
  Sex: Female

DRUGS (19)
  1. HUMAN IMMUNOGLOBULIN G [Suspect]
     Active Substance: HUMAN IMMUNOGLOBULIN G
     Indication: Myasthenia gravis
     Dosage: 21 GRAM, 1/WEEK
     Route: 058
     Dates: start: 20220421
  2. HUMAN IMMUNOGLOBULIN G [Suspect]
     Active Substance: HUMAN IMMUNOGLOBULIN G
     Dosage: 21 GRAM, 1/WEEK
     Route: 058
     Dates: start: 20220421
  3. HUMAN IMMUNOGLOBULIN G [Suspect]
     Active Substance: HUMAN IMMUNOGLOBULIN G
     Dosage: 21 GRAM, 1/WEEK
     Route: 058
     Dates: start: 20220421
  4. HUMAN IMMUNOGLOBULIN G [Suspect]
     Active Substance: HUMAN IMMUNOGLOBULIN G
     Dosage: 21 GRAM, 1/WEEK
     Route: 065
     Dates: start: 20220422
  5. SYNTHROID [Concomitant]
     Active Substance: LEVOTHYROXINE SODIUM
     Route: 065
  6. PREDNISONE [Concomitant]
     Active Substance: PREDNISONE
  7. ASPIRIN [Concomitant]
     Active Substance: ASPIRIN
     Dosage: 81 MILLIGRAM
     Route: 065
  8. COUMADIN [Concomitant]
     Active Substance: WARFARIN SODIUM
     Route: 065
  9. MESTINON [Concomitant]
     Active Substance: PYRIDOSTIGMINE BROMIDE
  10. VENTOLIN [Concomitant]
     Active Substance: ALBUTEROL SULFATE
  11. SYMBICORT [Concomitant]
     Active Substance: BUDESONIDE\FORMOTEROL FUMARATE DIHYDRATE
  12. TYLENOL [Concomitant]
     Active Substance: ACETAMINOPHEN
     Route: 065
  13. VITAMIN C [Concomitant]
     Active Substance: ASCORBIC ACID
     Dosage: UNK
     Route: 065
  14. VITAMIN D [Concomitant]
     Active Substance: VITAMIN D NOS
     Route: 065
  15. VITAMINS [Concomitant]
     Active Substance: VITAMINS
     Route: 065
  16. INSULIN NOS [Concomitant]
     Active Substance: INSULIN NOS
     Route: 065
  17. SYSTANE ULTRA [Concomitant]
     Active Substance: POLYETHYLENE GLYCOL 400\PROPYLENE GLYCOL
  18. GLYCERIN\POLYSORBATE 80 [Concomitant]
     Active Substance: GLYCERIN\POLYSORBATE 80
  19. TEARGEL [Concomitant]
     Route: 065

REACTIONS (10)
  - Intestinal resection [Not Recovered/Not Resolved]
  - Injection site swelling [Not Recovered/Not Resolved]
  - Hernia [Not Recovered/Not Resolved]
  - Scar [Not Recovered/Not Resolved]
  - Abdominal discomfort [Not Recovered/Not Resolved]
  - Injection site erythema [Not Recovered/Not Resolved]
  - Injection site pain [Not Recovered/Not Resolved]
  - Off label use [Not Recovered/Not Resolved]
  - Wrong technique in product usage process [Unknown]
  - Syringe issue [Unknown]

NARRATIVE: CASE EVENT DATE: 20220401
